FAERS Safety Report 11336426 (Version 3)
Quarter: 2015Q3

REPORT INFORMATION
  Report Type: Spontaneous
  Country: US (occurrence: US)
  Receive Date: 20150804
  Receipt Date: 20150812
  Transmission Date: 20151125
  Serious: Yes (Other)
  Sender: FDA-Public Use
  Company Number: US-UCBSA-2015024272

PATIENT
  Age: 88 Year
  Sex: Male
  Weight: 63 kg

DRUGS (13)
  1. SIMVASTATIN. [Concomitant]
     Active Substance: SIMVASTATIN
     Indication: BLOOD CHOLESTEROL
     Dosage: 20 MG, ONCE DAILY (QD), ABOUT 20 YEARS AGO
     Route: 048
  2. GABAPENTIN. [Concomitant]
     Active Substance: GABAPENTIN
     Indication: PARAESTHESIA
  3. COZAAR [Concomitant]
     Active Substance: LOSARTAN POTASSIUM
     Indication: BLOOD PRESSURE MEASUREMENT
     Dosage: 100 MG, ONCE DAILY (QD), ABOUT 20 YEARS AGO
     Route: 048
  4. RAPAFLO [Concomitant]
     Active Substance: SILODOSIN
     Indication: PROSTATITIS
     Dosage: 8 MG, ONCE DAILY (QD), 5 YEARS AGO
     Route: 048
  5. NEUPRO [Suspect]
     Active Substance: ROTIGOTINE
     Dosage: 6 MG, ONCE DAILY (QD)
     Dates: start: 2015
  6. SINEMET [Concomitant]
     Active Substance: CARBIDOPA\LEVODOPA
     Indication: PARKINSON^S DISEASE
     Dosage: 50/200, ONCE DAILY (QD), MORE THAN 5 YEARS AGO
     Route: 048
  7. GABAPENTIN. [Concomitant]
     Active Substance: GABAPENTIN
     Indication: PAIN
     Dosage: 100 MG, QHS EVERY NIGHT AT BEDTIME, 4 MONTHS AGO
     Route: 048
  8. SYNTHROID [Concomitant]
     Active Substance: LEVOTHYROXINE SODIUM
     Indication: THYROID DISORDER
     Dosage: 137 ?G, ONCE DAILY (QD), 15 YEARS AGO
     Route: 048
  9. MIRAPEX [Concomitant]
     Active Substance: PRAMIPEXOLE DIHYDROCHLORIDE
     Indication: PARKINSON^S DISEASE
     Dosage: 0.5 MG, ONCE DAILY (QD)-HALF TAB, MORE THAN 5 YEARS AGO
     Route: 048
  10. NEUPRO [Suspect]
     Active Substance: ROTIGOTINE
     Indication: PARKINSON^S DISEASE
     Dosage: 4 MG, ONCE DAILY (QD)
     Route: 062
     Dates: start: 201409, end: 20150531
  11. PLAVIX [Concomitant]
     Active Substance: CLOPIDOGREL BISULFATE
     Indication: STENT PLACEMENT
     Dosage: 75 MG, ONCE DAILY (QD), ABOUT 20 YEARS AGO
     Route: 048
  12. PROSCAR [Concomitant]
     Active Substance: FINASTERIDE
     Indication: PROSTATITIS
     Dosage: 5 MG, ONCE DAILY (QD), 5 YEARS AGO
     Route: 048
  13. ALBUTEROL. [Concomitant]
     Active Substance: ALBUTEROL
     Indication: ASTHMA
     Dosage: 0.63 MG, AS NEEDED (PRN), INHALATION

REACTIONS (6)
  - Deafness [Not Recovered/Not Resolved]
  - Insomnia [Unknown]
  - Speech disorder [Unknown]
  - Drug dose omission [Unknown]
  - Restless legs syndrome [Unknown]
  - Unevaluable event [Not Recovered/Not Resolved]

NARRATIVE: CASE EVENT DATE: 2015
